FAERS Safety Report 10642481 (Version 1)
Quarter: 2014Q4

REPORT INFORMATION
  Report Type: Spontaneous
  Country: US (occurrence: US)
  Receive Date: 20141210
  Receipt Date: 20141210
  Transmission Date: 20150529
  Serious: Yes (Other)
  Sender: FDA-Public Use
  Company Number: US-BEH-2014046991

PATIENT
  Age: 14 Year

DRUGS (1)
  1. INTRAVENOUS IMMUNOGLOBULIN [Suspect]
     Active Substance: HUMAN IMMUNOGLOBULIN G
     Indication: BRUTON^S AGAMMAGLOBULINAEMIA

REACTIONS (2)
  - Dementia [Not Recovered/Not Resolved]
  - Nerve degeneration [Not Recovered/Not Resolved]
